FAERS Safety Report 9518285 (Version 1)
Quarter: 2013Q1

REPORT INFORMATION
  Report Type: Spontaneous
  Country: US (occurrence: None)
  Receive Date: 20130305
  Receipt Date: 20130305
  Transmission Date: 20140127
  Serious: Yes (Other)
  Sender: FDA-Public Use
  Company Number: 163-21880-12072049

PATIENT
  Age: 84 Year
  Sex: Female

DRUGS (4)
  1. REVLIMID (LENALIDOMIDE) (CAPSULES) [Suspect]
     Indication: MYELODYSPLASTIC SYNDROME
     Dosage: 10 MG, 1 IN 1 D, PO
     Route: 048
     Dates: start: 200912
  2. LOVENOX (HEPARIN-FRACTION, SODIUM SALT) (UNKNOWN) [Concomitant]
  3. LISINOPRIL (LISINOPRIL) (UNKNOWN) [Concomitant]
  4. FUROSEMIDE (FUROSEMIDE) (UNKNOWN) [Concomitant]

REACTIONS (10)
  - Pancreatitis [None]
  - Thrombosis [None]
  - Syncope [None]
  - Drug dose omission [None]
  - International normalised ratio decreased [None]
  - Arthritis [None]
  - Diarrhoea [None]
  - Asthenia [None]
  - Local swelling [None]
  - Platelet count decreased [None]
